FAERS Safety Report 7319171-2 (Version None)
Quarter: 2011Q1

REPORT INFORMATION
  Report Type: 
  Country: None (occurrence: None)
  Receive Date: 20110228
  Receipt Date: 20110218
  Transmission Date: 20110831
  Serious: Yes (Death, Hospitalization)
  Sender: FDA-Public Use
  Company Number: JP-AMGEN-JPNCT2011011063

PATIENT
  Age: 64 Year
  Sex: Female
  Weight: 62 kg

DRUGS (6)
  1. FLUOROURACIL [Concomitant]
     Route: 041
     Dates: start: 20100624, end: 20100823
  2. IRINOTECAN HCL [Concomitant]
     Indication: COLORECTAL CANCER
     Route: 041
     Dates: start: 20100624, end: 20100823
  3. PANITUMUMAB [Suspect]
     Indication: COLORECTAL CANCER
     Dosage: 6 MG/KG, UNK
     Route: 041
     Dates: start: 20100624, end: 20100730
  4. PANITUMUMAB [Suspect]
     Dosage: 6 MG/KG, Q2WK
     Route: 042
     Dates: start: 20100823, end: 20100914
  5. FLUOROURACIL [Concomitant]
     Indication: COLORECTAL CANCER
     Route: 040
     Dates: start: 20100624, end: 20100823
  6. CALCIUM LEVOFOLINATE [Concomitant]
     Indication: COLORECTAL CANCER
     Route: 041
     Dates: start: 20100624, end: 20100823

REACTIONS (5)
  - DERMATITIS [None]
  - ASCITES [None]
  - HEPATIC FUNCTION ABNORMAL [None]
  - COLORECTAL CANCER [None]
  - STOMATITIS [None]
